FAERS Safety Report 10395392 (Version 1)
Quarter: 2014Q1

REPORT INFORMATION
  Report Type: Spontaneous
  Country: US (occurrence: None)
  Receive Date: 20130306
  Receipt Date: 20130306
  Transmission Date: 20141002
  Serious: Yes (Other)
  Sender: FDA-Public Use
  Company Number: 163-21880-12092182

PATIENT
  Age: 69 Year
  Sex: Male

DRUGS (6)
  1. REVLIMID (LENALIDOMIDE)(15 MILLIGRAM, CAPSULES) [Suspect]
     Indication: PLASMA CELL MYELOMA
     Dosage: 21 IN 28 D, PO
     Route: 048
     Dates: start: 20120523, end: 20120821
  2. VITAMIN B 12(VITAMIN B 12)(UNKNOWN) [Concomitant]
  3. POTASSIUM CHLORIDE(POTASSIUM CHLORIDE)(TABLETS) [Concomitant]
  4. VERAPAMIL(VERAPAMIL)(CAPSULES) [Concomitant]
  5. DIOVAN(VALSARTAN)(TABLETS) [Concomitant]
  6. ZOLPIDEM(ZOLPIDEM)(TABLETS) [Concomitant]

REACTIONS (1)
  - Femur fracture [None]
